FAERS Safety Report 19175666 (Version 1)
Quarter: 2021Q2

REPORT INFORMATION
  Report Type: Spontaneous
  Country: US (occurrence: US)
  Receive Date: 20210423
  Receipt Date: 20210423
  Transmission Date: 20210717
  Serious: Yes (Hospitalization)
  Sender: FDA-Public Use
  Company Number: US-ELI_LILLY_AND_COMPANY-US202104007075

PATIENT
  Sex: Male

DRUGS (6)
  1. HUMALOG [Suspect]
     Active Substance: INSULIN LISPRO
     Indication: TYPE 2 DIABETES MELLITUS
     Dosage: UNK UNK, PRN
     Route: 058
     Dates: start: 2014
  2. HUMALOG [Suspect]
     Active Substance: INSULIN LISPRO
     Dosage: 10 U, TID
     Route: 058
  3. LANTUS [Concomitant]
     Active Substance: INSULIN GLARGINE
     Indication: TYPE 2 DIABETES MELLITUS
  4. DULOXETINE. [Concomitant]
     Active Substance: DULOXETINE
     Indication: NEUROPATHY PERIPHERAL
  5. LYRICA [Concomitant]
     Active Substance: PREGABALIN
     Indication: NEUROPATHY PERIPHERAL
  6. HUMALOG [Suspect]
     Active Substance: INSULIN LISPRO
     Dosage: 25 U, PRN
     Route: 058

REACTIONS (12)
  - Rib fracture [Recovered/Resolved]
  - Fall [Unknown]
  - Ligament rupture [Recovered/Resolved]
  - Diabetic neuropathy [Not Recovered/Not Resolved]
  - Fall [Unknown]
  - Chronic kidney disease [Unknown]
  - Bacterial infection [Recovered/Resolved]
  - Pelvic fracture [Recovered/Resolved]
  - Arthritis [Unknown]
  - Blood glucose increased [Not Recovered/Not Resolved]
  - Diabetes mellitus inadequate control [Recovered/Resolved]
  - Blood glucose decreased [Recovered/Resolved]

NARRATIVE: CASE EVENT DATE: 2016
